FAERS Safety Report 23603518 (Version 1)
Quarter: 2024Q1

REPORT INFORMATION
  Report Type: Report from Study
  Country: IT (occurrence: IT)
  Receive Date: 20240307
  Receipt Date: 20240307
  Transmission Date: 20240410
  Serious: Yes (Other)
  Sender: FDA-Public Use
  Company Number: IT-CELLTRION HEALTHCARE HUNGARY KFT-2024IT002871

PATIENT
  Age: 53 Year
  Sex: Female

DRUGS (5)
  1. BENDAMUSTINE [Suspect]
     Active Substance: BENDAMUSTINE
     Indication: Follicular lymphoma
     Dosage: R-BENDA; TIME FROM LATEST BENDAMUSTINE ADMINISTRATION TO FIRST VACCINE DOSE WAS 444 DAYS.
     Route: 065
  2. ELASOMERAN [Suspect]
     Active Substance: ELASOMERAN
     Indication: COVID-19
     Dosage: FIRST DOSE
     Route: 065
     Dates: start: 202103
  3. ELASOMERAN [Suspect]
     Active Substance: ELASOMERAN
     Dosage: A SECOND MRNA-1273 VACCINE DOSE 28 DAYS LATER
     Route: 065
  4. ELASOMERAN [Suspect]
     Active Substance: ELASOMERAN
     Dosage: A THIRD VACCINE
     Route: 065
     Dates: start: 202112, end: 202201
  5. RITUXIMAB [Suspect]
     Active Substance: RITUXIMAB
     Indication: Follicular lymphoma
     Dosage: R-BENDA; RTX
     Route: 065

REACTIONS (2)
  - Breakthrough COVID-19 [Unknown]
  - Vaccination failure [Unknown]
